FAERS Safety Report 9317897 (Version 2)
Quarter: 2013Q2

REPORT INFORMATION
  Report Type: Spontaneous
  Country: VE (occurrence: VE)
  Receive Date: 20130530
  Receipt Date: 20130607
  Transmission Date: 20140414
  Serious: Yes (Death, Other)
  Sender: FDA-Public Use
  Company Number: VE-PFIZER INC-2013162135

PATIENT
  Age: 60 Year
  Sex: Male

DRUGS (3)
  1. LIPITOR [Suspect]
     Indication: PROPHYLAXIS
     Dosage: 80 MG, 1X/DAY
     Route: 048
     Dates: start: 2011
  2. COZAAR [Concomitant]
     Indication: HYPERTENSION
     Dosage: 50 MG, 1X/DAY
     Route: 048
  3. PLAVIX [Concomitant]
     Indication: PROPHYLAXIS
     Dosage: 75 MG, 1X/DAY
     Route: 048

REACTIONS (4)
  - Cardio-respiratory arrest [Fatal]
  - Clear cell renal cell carcinoma [Unknown]
  - Metastases to liver [Unknown]
  - Metastases to lung [Unknown]
